FAERS Safety Report 12251941 (Version 2)
Quarter: 2016Q2

REPORT INFORMATION
  Report Type: Spontaneous
  Country: IT (occurrence: IT)
  Receive Date: 20160411
  Receipt Date: 20160505
  Transmission Date: 20160815
  Serious: Yes (Life-Threatening)
  Sender: FDA-Public Use
  Company Number: IT-HOSPIRA-3235923

PATIENT
  Age: 53 Year
  Sex: Male

DRUGS (1)
  1. CEFOTAXIME HOSPIRA [Suspect]
     Active Substance: CEFOTAXIME SODIUM
     Indication: PROPHYLAXIS
     Route: 040

REACTIONS (3)
  - Generalised erythema [Recovered/Resolved]
  - Dyspnoea [Recovered/Resolved]
  - Pruritus [Recovered/Resolved]

NARRATIVE: CASE EVENT DATE: 20160320
